FAERS Safety Report 25065803 (Version 2)
Quarter: 2025Q3

REPORT INFORMATION
  Report Type: Report from Study
  Country: US (occurrence: US)
  Receive Date: 20250311
  Receipt Date: 20250729
  Transmission Date: 20251020
  Serious: No
  Sender: SANDOZ
  Company Number: US-SANDOZ-SDZ2025US014043

PATIENT
  Age: 41 Year
  Sex: Male

DRUGS (1)
  1. HYRIMOZ [Suspect]
     Active Substance: ADALIMUMAB-ADAZ
     Indication: Product used for unknown indication
     Dosage: 40 MG, Q2W
     Route: 065
     Dates: start: 20250305, end: 20250305

REACTIONS (4)
  - Sunburn [Unknown]
  - Feeling hot [Unknown]
  - Skin tightness [Unknown]
  - Flushing [Unknown]

NARRATIVE: CASE EVENT DATE: 20250305
